FAERS Safety Report 25873809 (Version 1)
Quarter: 2025Q4

REPORT INFORMATION
  Report Type: Spontaneous
  Country: US (occurrence: US)
  Receive Date: 20251002
  Receipt Date: 20251002
  Transmission Date: 20260117
  Serious: Yes (Other)
  Sender: INTRA-CELLULAR THERAPIES
  Company Number: US-INTRA-CELLULAR THERAPIES, INC.-2025ICT01343

PATIENT
  Sex: Female
  Weight: 104.31 kg

DRUGS (9)
  1. CAPLYTA [Suspect]
     Active Substance: LUMATEPERONE
     Indication: Bipolar disorder
     Dosage: 10 MG, 1X/DAY, IN THE EVENING BEFORE BEDTIME
     Dates: start: 202503, end: 20250407
  2. CAPLYTA [Suspect]
     Active Substance: LUMATEPERONE
     Dosage: 21 MG, 1X/DAY, IN THE EVENING BEFORE BEDTIME
     Dates: start: 20250408, end: 20250421
  3. CAPLYTA [Suspect]
     Active Substance: LUMATEPERONE
     Dosage: 42 MG, 1X/DAY, IN THE EVENING BEFORE BEDTIME
     Dates: start: 20250422
  4. LAMOTRIGINE [Concomitant]
     Active Substance: LAMOTRIGINE
     Dosage: 100 MG, 1X/DAY IN THE AM
  5. PAROXETINE [Concomitant]
     Active Substance: PAROXETINE
     Dosage: 40 MG, 1X/DAY IN THE AM
  6. BUPROPION [Concomitant]
     Active Substance: BUPROPION
     Dosage: 150 MG, 1X/DAY IN THE AM
  7. BUPROPION [Concomitant]
     Active Substance: BUPROPION
     Dosage: 300 MG, 1X/DAY IN THE AM
  8. LORAZEPAM [Concomitant]
     Active Substance: LORAZEPAM
     Dosage: 0.5 MG, AS NEEDED
  9. VITAMINS [Concomitant]
     Active Substance: VITAMINS
     Dosage: UNK, 1X/DAY, IN THE AM

REACTIONS (2)
  - Tardive dyskinesia [Recovering/Resolving]
  - Tremor [Recovering/Resolving]

NARRATIVE: CASE EVENT DATE: 20250101
